FAERS Safety Report 8954044 (Version 1)
Quarter: 2012Q4

REPORT INFORMATION
  Report Type: 
  Country: JP (occurrence: JP)
  Receive Date: 20121207
  Receipt Date: 20121207
  Transmission Date: 20130627
  Serious: Yes (Hospitalization)
  Sender: FDA-Public Use
  Company Number: JP-BRISTOL-MYERS SQUIBB COMPANY-17159690

PATIENT
  Age: 85 Year
  Sex: Male

DRUGS (3)
  1. CISPLATIN [Suspect]
     Indication: METASTATIC GASTRIC CANCER
  2. GIMERACIL\OTERACIL\TEGAFUR [Suspect]
     Indication: METASTATIC GASTRIC CANCER
  3. DOCETAXEL [Suspect]
     Indication: METASTATIC GASTRIC CANCER

REACTIONS (2)
  - Stomatitis [Unknown]
  - Decreased appetite [Unknown]
